FAERS Safety Report 23201539 (Version 1)
Quarter: 2023Q4

REPORT INFORMATION
  Report Type: Spontaneous
  Country: CN (occurrence: CN)
  Receive Date: 20231118
  Receipt Date: 20231118
  Transmission Date: 20240109
  Serious: Yes (Hospitalization, Other)
  Sender: FDA-Public Use
  Company Number: CN-TAKEDA-2023TUS110659

PATIENT
  Age: 41 Year
  Sex: Female
  Weight: 45 kg

DRUGS (1)
  1. ENTYVIO [Suspect]
     Active Substance: VEDOLIZUMAB
     Indication: Crohn^s disease
     Dosage: 300 MILLIGRAM
     Route: 042
     Dates: start: 20231102, end: 20231102

REACTIONS (12)
  - Peripheral swelling [Unknown]
  - Musculoskeletal stiffness [Recovering/Resolving]
  - Erythema [Unknown]
  - Drug hypersensitivity [Unknown]
  - Headache [Recovering/Resolving]
  - Arthralgia [Unknown]
  - Pyrexia [Unknown]
  - Pain in extremity [Unknown]
  - Pain [Unknown]
  - Discomfort [Unknown]
  - Rash erythematous [Unknown]
  - Acne [Unknown]

NARRATIVE: CASE EVENT DATE: 20231103
